FAERS Safety Report 11128514 (Version 2)
Quarter: 2015Q2

REPORT INFORMATION
  Report Type: Spontaneous
  Country: CN (occurrence: None)
  Receive Date: 20150519
  Receipt Date: 20150617
  Transmission Date: 20150821
  Serious: Yes (Hospitalization)
  Sender: FDA-Public Use
  Company Number: 2015AMD00070

PATIENT
  Age: 15 Year
  Weight: 52 kg

DRUGS (1)
  1. ZENTEL (ALBENDAZOLE) TABLET [Suspect]
     Active Substance: ALBENDAZOLE
     Indication: INFECTION PARASITIC
     Route: 048
     Dates: start: 20150405, end: 20150405

REACTIONS (2)
  - Henoch-Schonlein purpura [None]
  - Transaminases increased [None]

NARRATIVE: CASE EVENT DATE: 20150406
